FAERS Safety Report 7349237-2 (Version None)
Quarter: 2011Q1

REPORT INFORMATION
  Report Type: 
  Country: None (occurrence: None)
  Receive Date: 20110314
  Receipt Date: 20110304
  Transmission Date: 20110831
  Serious: Yes (Death)
  Sender: FDA-Public Use
  Company Number: US-AMGEN INC.-KDL443600

PATIENT
  Age: 54 Year
  Sex: Male
  Weight: 105 kg

DRUGS (2)
  1. PROCRIT [Suspect]
     Indication: DIALYSIS
     Dosage: UNK UNK, 3 TIMES/WK
     Route: 042
     Dates: start: 20080301, end: 20100701
  2. EPOGEN [Suspect]
     Indication: DIALYSIS
     Dosage: UNK UNK, 3 TIMES/WK
     Route: 042
     Dates: start: 20080301, end: 20100629

REACTIONS (1)
  - DEATH [None]
